FAERS Safety Report 7244637-3 (Version None)
Quarter: 2011Q1

REPORT INFORMATION
  Report Type: 
  Country: None (occurrence: None)
  Receive Date: 20110125
  Receipt Date: 20110118
  Transmission Date: 20110831
  Serious: Yes (Other)
  Sender: FDA-Public Use
  Company Number: GB-GENENTECH-204668

PATIENT
  Age: 80 Year
  Sex: Female

DRUGS (6)
  1. DOXORUBICIN [Concomitant]
     Indication: LYMPHOMA
     Dosage: UNK UNK, UNKNOWN
     Dates: start: 20031201
  2. RITUXAN [Suspect]
     Indication: LYMPHOMA
     Dosage: UNK UNK, UNKNOWN
     Route: 042
     Dates: start: 20031201
  3. NEULASTA [Suspect]
     Indication: CHEMOTHERAPY
     Dosage: UNK UNK, UNKNOWN
     Dates: start: 20040110, end: 20040110
  4. CYCLOPHOSPHAMIDE [Concomitant]
     Indication: LYMPHOMA
     Route: 042
     Dates: start: 20031201
  5. PREDNISONE [Concomitant]
     Indication: LYMPHOMA
     Dosage: UNK UNK, UNKNOWN
     Dates: start: 20031201
  6. VINCRISTINE [Concomitant]
     Indication: LYMPHOMA
     Dosage: UNK UNK, UNKNOWN
     Dates: start: 20031201

REACTIONS (3)
  - PAIN [None]
  - NEUTROPENIA [None]
  - THROMBOCYTOPENIA [None]
